FAERS Safety Report 9396919 (Version 1)
Quarter: 2013Q3

REPORT INFORMATION
  Report Type: Spontaneous
  Country: US (occurrence: US)
  Receive Date: 20130712
  Receipt Date: 20130712
  Transmission Date: 20140515
  Serious: Yes (Death)
  Sender: FDA-Public Use
  Company Number: US-SHIRE-ALL1-2013-04642

PATIENT
  Age: 64 Year
  Sex: Male

DRUGS (1)
  1. FOSRENOL [Suspect]
     Indication: RENAL FAILURE CHRONIC
     Dosage: 5000 MG, OTHER (FIVE 1000 MG PER DAY)
     Route: 048
     Dates: start: 201203

REACTIONS (1)
  - Death [Fatal]
